FAERS Safety Report 8787489 (Version 1)
Quarter: 2012Q4

REPORT INFORMATION
  Report Type: 
  Country: US (occurrence: US)
  Receive Date: 20120914
  Receipt Date: 20120914
  Transmission Date: 20130627
  Serious: No
  Sender: FDA-Public Use
  Company Number: US-VERTEX PHARMACEUTICAL INC.-AE-2012-008356

PATIENT

DRUGS (14)
  1. INCIVEK [Suspect]
     Indication: HEPATITIS C
     Route: 048
     Dates: start: 20120527
  2. PEGASYS [Concomitant]
     Indication: HEPATITIS C
     Route: 058
     Dates: start: 20120527
  3. RIBAVIRIN [Concomitant]
     Indication: HEPATITIS C
     Route: 048
     Dates: start: 20120527, end: 201206
  4. RIBAVIRIN [Concomitant]
     Dates: start: 201206
  5. PROTONIX [Concomitant]
  6. MULTIVITAMINS [Concomitant]
  7. WELBUTRIN [Concomitant]
  8. CYMBALTA [Concomitant]
  9. VALTREX [Concomitant]
  10. RITALIN [Concomitant]
  11. LORAZEPAM [Concomitant]
  12. VITAMIN D [Concomitant]
  13. ANUSOL [Concomitant]
  14. SKELAXIN [Concomitant]

REACTIONS (8)
  - Stomatitis [Not Recovered/Not Resolved]
  - Dry skin [Unknown]
  - Red blood cell count decreased [Unknown]
  - Rash pruritic [Not Recovered/Not Resolved]
  - Haemorrhoids [Not Recovered/Not Resolved]
  - Frequent bowel movements [Not Recovered/Not Resolved]
  - Nausea [Not Recovered/Not Resolved]
  - Proctalgia [Not Recovered/Not Resolved]
